FAERS Safety Report 16472672 (Version 1)
Quarter: 2019Q2

REPORT INFORMATION
  Report Type: Report from Study
  Country: CR (occurrence: CR)
  Receive Date: 20190625
  Receipt Date: 20190625
  Transmission Date: 20190711
  Serious: Yes (Other)
  Sender: FDA-Public Use
  Company Number: CR-SA-2018SA261494

PATIENT
  Age: 51 Year
  Sex: Male

DRUGS (2)
  1. HYDROCHLOROTHIAZIDE/IRBESARTAN [Suspect]
     Active Substance: HYDROCHLOROTHIAZIDE\IRBESARTAN
     Dosage: 0.5 DF (300 MG OF IRBESARTAN + 25 MG OF HYDROCHLOROTHIAZIDE), QD
     Route: 048
  2. HYDROCHLOROTHIAZIDE/IRBESARTAN [Suspect]
     Active Substance: HYDROCHLOROTHIAZIDE\IRBESARTAN
     Indication: HYPERTENSION
     Dosage: 1 DF (300 MG OF IRBESARTAN + 25 MG OF HYDROCHLOROTHIAZIDE), QD
     Route: 048
     Dates: start: 2018

REACTIONS (4)
  - Speech disorder [Not Recovered/Not Resolved]
  - Off label use [Unknown]
  - Paralysis [Not Recovered/Not Resolved]
  - Angiopathy [Not Recovered/Not Resolved]

NARRATIVE: CASE EVENT DATE: 20180916
